FAERS Safety Report 23670487 (Version 1)
Quarter: 2024Q1

REPORT INFORMATION
  Report Type: Spontaneous
  Country: FR (occurrence: FR)
  Receive Date: 20240326
  Receipt Date: 20240326
  Transmission Date: 20240410
  Serious: Yes (Death, Life-Threatening, Other)
  Sender: FDA-Public Use
  Company Number: FR-EMA-20130711-ssharmap-141817440

PATIENT
  Age: 93 Year
  Sex: Female
  Weight: 67 kg

DRUGS (20)
  1. TRAMADOL [Suspect]
     Active Substance: TRAMADOL\TRAMADOL HYDROCHLORIDE
     Indication: Spinal column injury
     Dosage: 100 MILLIGRAM, ONCE A DAY
     Route: 048
     Dates: start: 20070628, end: 20070713
  2. KARDEGIC [Suspect]
     Active Substance: ASPIRIN DL-LYSINE
     Indication: Prophylaxis
     Dosage: 75 MILLIGRAM, ONCE A DAY (DOSE REPORTED AS 1 DOSE QD.)
     Route: 048
     Dates: start: 20070705
  3. INIPOMP [Suspect]
     Active Substance: PANTOPRAZOLE SODIUM
     Indication: Product used for unknown indication
     Dosage: 40 MILLIGRAM, ONCE A DAY (1 DF)
     Route: 048
     Dates: start: 20070705
  4. CEFTRIAXONE SODIUM [Suspect]
     Active Substance: CEFTRIAXONE SODIUM
     Indication: Respiratory tract infection
     Dosage: 1 GRAM, ONCE A DAY (FORM REPORTED AS INJECTABLE SOLUTION)
     Route: 042
     Dates: start: 20070709
  5. FUROSEMIDE [Suspect]
     Active Substance: FUROSEMIDE
     Indication: Product used for unknown indication
     Dosage: 40 MILLIGRAM, ONCE A DAY
     Route: 048
     Dates: start: 20070629, end: 20070704
  6. FUROSEMIDE [Suspect]
     Active Substance: FUROSEMIDE
     Dosage: UNK (DOSE INCREASED)
     Route: 048
     Dates: start: 20070704
  7. LEVOFLOXACIN [Suspect]
     Active Substance: LEVOFLOXACIN
     Indication: Respiratory tract infection
     Dosage: 250 MILLIGRAM, ONCE A DAY (1 DF)
     Route: 048
     Dates: start: 20070704, end: 20070713
  8. LEVOFLOXACIN [Suspect]
     Active Substance: LEVOFLOXACIN
     Indication: Respiratory tract infection
     Dosage: 1000 MILLIGRAM, ONCE A DAY
     Route: 048
     Dates: start: 20070705, end: 20070713
  9. TRAMADOL HYDROCHLORIDE [Suspect]
     Active Substance: TRAMADOL HYDROCHLORIDE
     Indication: Spinal column injury
     Dosage: 100 MILLIGRAM, ONCE A DAY
     Route: 048
     Dates: start: 20070628, end: 20070713
  10. AMOXICILLIN\CLAVULANIC ACID [Concomitant]
     Active Substance: AMOXICILLIN\CLAVULANIC ACID
     Indication: Respiratory tract infection
     Dosage: 1 DOSAGE FORM, ONCE A DAY
     Route: 065
     Dates: start: 20070630, end: 20070704
  11. AMOXICILLIN\CLAVULANIC ACID [Concomitant]
     Active Substance: AMOXICILLIN\CLAVULANIC ACID
     Dosage: 1 DOSAGE FORM, ONCE A DAY
     Route: 048
     Dates: start: 20070715, end: 20070716
  12. IPRATROPIUM [Concomitant]
     Active Substance: IPRATROPIUM
     Indication: Respiratory tract infection
     Dosage: 1 DOSAGE FORM
     Route: 065
     Dates: start: 20070630
  13. DAFALGAN [Concomitant]
     Active Substance: ACETAMINOPHEN
     Indication: Pain
     Dosage: 1 MILLIGRAM, FOUR TIMES/DAY
     Route: 065
     Dates: start: 20070628
  14. TERBUTALINE [Concomitant]
     Active Substance: TERBUTALINE
     Indication: Respiratory tract infection
     Dosage: 1 DOSAGE FORM
     Route: 065
     Dates: start: 20070630
  15. CALCIUM\CHOLECALCIFEROL [Concomitant]
     Active Substance: CALCIUM\CHOLECALCIFEROL
     Indication: Spinal cord compression
     Dosage: 1 DOSAGE FORM, EVERY OTHER DAY (DOSE REPORTED AS 2 DOSES PER DAY.)
     Route: 048
     Dates: start: 20070628
  16. PREDNISOLONE [Concomitant]
     Active Substance: PREDNISOLONE
     Indication: Product used for unknown indication
     Dosage: 60 MILLIGRAM, ONCE A DAY
     Route: 048
     Dates: start: 20070713
  17. CHONDROITIN SULFATE (CHICKEN) [Concomitant]
     Active Substance: CHONDROITIN SULFATE (CHICKEN)
     Indication: Polyarthritis
     Dosage: UNK
     Route: 065
  18. CALCIUM CARBONATE\CHOLECALCIFEROL [Concomitant]
     Active Substance: CALCIUM CARBONATE\CHOLECALCIFEROL
     Indication: Spinal compression fracture
     Dosage: 2 DOSAGE FORM, ONCE A DAY
     Route: 048
     Dates: start: 20070628
  19. Seropram [Concomitant]
     Indication: Product used for unknown indication
     Dosage: 20 MILLIGRAM, ONCE A DAY
     Route: 048
     Dates: start: 20070703
  20. GINKGO [Concomitant]
     Active Substance: GINKGO
     Indication: Product used for unknown indication
     Dosage: UNK
     Route: 065

REACTIONS (1)
  - Acute kidney injury [Fatal]

NARRATIVE: CASE EVENT DATE: 20070711
